FAERS Safety Report 11238982 (Version 5)
Quarter: 2015Q3

REPORT INFORMATION
  Report Type: Report from Study
  Country: GB (occurrence: GB)
  Receive Date: 20150706
  Receipt Date: 20150915
  Transmission Date: 20151125
  Serious: Yes (Death, Hospitalization, Other)
  Sender: FDA-Public Use
  Company Number: GB-ABBVIE-15K-167-1420155-00

PATIENT
  Age: 80 Year
  Sex: Female
  Weight: 70 kg

DRUGS (1)
  1. HUMIRA [Suspect]
     Active Substance: ADALIMUMAB
     Indication: RHEUMATOID ARTHRITIS
     Route: 058
     Dates: start: 20080220, end: 20090716

REACTIONS (8)
  - Vomiting [Fatal]
  - Cervical vertebral fracture [Fatal]
  - Fall [Fatal]
  - Traumatic haematoma [Fatal]
  - Head injury [Fatal]
  - Intracardiac thrombus [Fatal]
  - Myocardial infarction [Fatal]
  - Gastrointestinal haemorrhage [Fatal]

NARRATIVE: CASE EVENT DATE: 20150130
